FAERS Safety Report 6200169-2 (Version None)
Quarter: 2009Q2

REPORT INFORMATION
  Report Type: 
  Country: None (occurrence: None)
  Receive Date: 20090522
  Receipt Date: 20090511
  Transmission Date: 20091009
  Serious: Yes (Other)
  Sender: FDA-Public Use
  Company Number: US-JNJFOC-20090201300

PATIENT
  Age: 2 Year
  Sex: Female
  Weight: 20.87 kg

DRUGS (2)
  1. TYLENOL [Suspect]
     Indication: PYREXIA
     Dosage: 5 ML, EVERY 4-6 HOURS, 6-9 TIMES OVER 3 DAYS, ORAL
     Route: 048
  2. CHILDREN'S MOTRIN [Concomitant]
     Indication: PYREXIA
     Dosage: EVERY 6-8 HOURS

REACTIONS (9)
  - CONFUSIONAL STATE [None]
  - CRYING [None]
  - HALLUCINATION [None]
  - PAIN [None]
  - PRODUCT QUALITY ISSUE [None]
  - PRURITUS [None]
  - PYREXIA [None]
  - VOMITING [None]
  - WRONG DRUG ADMINISTERED [None]
